FAERS Safety Report 19743696 (Version 1)
Quarter: 2021Q3

REPORT INFORMATION
  Report Type: Spontaneous
  Country: DE (occurrence: DE)
  Receive Date: 20210825
  Receipt Date: 20210825
  Transmission Date: 20211014
  Serious: Yes (Hospitalization)
  Sender: FDA-Public Use
  Company Number: DE-ACCORD-236281

PATIENT
  Age: 79 Year
  Sex: Male
  Weight: 108 kg

DRUGS (13)
  1. TORASEMIDE [Concomitant]
     Active Substance: TORSEMIDE
     Dosage: 10 MG, 1?0?0?0, TABLETS
     Route: 048
  2. TAMSULOSIN/TAMSULOSIN HYDROCHLORIDE [Concomitant]
     Active Substance: TAMSULOSIN HYDROCHLORIDE
     Dosage: 0.3 MG, 1?0?1?0, TABLETS
     Route: 048
  3. MONTELUKAST [Concomitant]
     Active Substance: MONTELUKAST SODIUM
     Dosage: 10 MG, 0?0?1?0, TABLETS
     Route: 048
  4. BISOPROLOL [Suspect]
     Active Substance: BISOPROLOL
     Indication: PRODUCT USED FOR UNKNOWN INDICATION
     Dosage: 2.5 MG, 1?0?0?0, TABLETS
     Route: 048
  5. BECLOMETASONE/FORMOTEROL/GLYCOPYRRONIUM [Concomitant]
     Dosage: 87 MICROGRAMS / 5 MICROGRAMS / 9 MICROGRAMS, 1?0?1?0, METERED DOSE INHALER
     Route: 055
  6. SALBUTAMOL [Concomitant]
     Active Substance: ALBUTEROL
     Dosage: EMERGENCY SPRAY, METERED DOSE INHALER
     Route: 055
  7. PANTOPRAZOLE [Concomitant]
     Active Substance: PANTOPRAZOLE
     Dosage: 40 MG, 1?0?0?0, TABLETS
     Route: 048
  8. TIOTROPIUM [Concomitant]
     Active Substance: TIOTROPIUM
     Dosage: 2.5 MICROGRAM, 2?0?2?0, METERED DOSE INHALER
     Route: 055
  9. SALBUTAMOL AL [Concomitant]
     Dosage: 1?0?1?0, READY?TO?USE INHALATION
     Route: 055
  10. ATORVASTATIN [Concomitant]
     Active Substance: ATORVASTATIN
     Dosage: 20 MG, 0?0?1?0, TABLETS
     Route: 048
  11. APIXABAN [Suspect]
     Active Substance: APIXABAN
     Indication: PRODUCT USED FOR UNKNOWN INDICATION
     Dosage: 5 MG, 1?0?1?0, TABLETS
     Route: 048
  12. ALLOPURINOL. [Concomitant]
     Active Substance: ALLOPURINOL
     Dosage: 300 MG, 1?0?0?0, TABLETS
     Route: 048
  13. DUTASTERIDE. [Concomitant]
     Active Substance: DUTASTERIDE
     Dosage: 0.5 MG, 1?0?0?0, TABLETS
     Route: 048

REACTIONS (6)
  - Weight increased [Unknown]
  - Palpitations [Unknown]
  - Haemoptysis [Unknown]
  - Chest pain [Unknown]
  - Dyspnoea exertional [Unknown]
  - Cough [Unknown]
